FAERS Safety Report 15722566 (Version 2)
Quarter: 2018Q4

REPORT INFORMATION
  Report Type: Spontaneous
  Country: BR (occurrence: BR)
  Receive Date: 20181214
  Receipt Date: 20181226
  Transmission Date: 20190205
  Serious: Yes (Other)
  Sender: FDA-Public Use
  Company Number: BR-PROVELL PHARMACEUTICALS-2060176

PATIENT
  Age: 60 Year
  Sex: Female

DRUGS (2)
  1. ROXFLAN [Suspect]
     Active Substance: AMLODIPINE BESYLATE
     Route: 048
  2. EUTHYROX [Suspect]
     Active Substance: LEVOTHYROXINE SODIUM
     Indication: POST PROCEDURAL HYPOTHYROIDISM
     Dates: start: 2018

REACTIONS (2)
  - Drug ineffective [None]
  - Blood pressure increased [Recovered/Resolved]
